FAERS Safety Report 17824846 (Version 5)
Quarter: 2021Q1

REPORT INFORMATION
  Report Type: Report from Study
  Country: US (occurrence: US)
  Receive Date: 20200526
  Receipt Date: 20210324
  Transmission Date: 20210419
  Serious: Yes (Other)
  Sender: FDA-Public Use
  Company Number: US-SHIRE-US202017061

PATIENT
  Age: 30 Year
  Sex: Male

DRUGS (3)
  1. RECOMBINATE [Suspect]
     Active Substance: ANTIHEMOPHILIC FACTOR, HUMAN RECOMBINANT
     Dosage: 3200 INTERNATIONAL UNIT
     Route: 042
  2. RECOMBINATE [Suspect]
     Active Substance: ANTIHEMOPHILIC FACTOR, HUMAN RECOMBINANT
     Dosage: 3300 INTERNATIONAL UNIT
     Route: 042
  3. RECOMBINATE [Suspect]
     Active Substance: ANTIHEMOPHILIC FACTOR, HUMAN RECOMBINANT
     Indication: PRODUCT USED FOR UNKNOWN INDICATION
     Dosage: 4400 INTERNATIONAL UNIT
     Route: 042

REACTIONS (4)
  - Urinary tract infection [Unknown]
  - Renal haemorrhage [Recovered/Resolved]
  - Muscle haemorrhage [Unknown]
  - Haemarthrosis [Recovered/Resolved]

NARRATIVE: CASE EVENT DATE: 20200514
